FAERS Safety Report 5051866-6 (Version None)
Quarter: 2006Q3

REPORT INFORMATION
  Report Type: 
  Country: None (occurrence: None)
  Receive Date: 20060710
  Receipt Date: 20060703
  Transmission Date: 20061208
  Serious: Yes (Hospitalization, Other)
  Sender: FDA-Public Use
  Company Number: 200614108BWH

PATIENT
  Age: 49 Year
  Sex: Female
  Weight: 45.2 kg

DRUGS (8)
  1. SORAFENIB [Suspect]
     Indication: BILE DUCT CANCER
     Dosage: 400 MG, BID, ORAL
     Route: 048
     Dates: start: 20060112, end: 20060524
  2. MICRO-K [Concomitant]
  3. NEXIUM [Concomitant]
  4. MS CONTIN [Concomitant]
  5. MORPHINE SULFATE [Concomitant]
  6. COLACE [Concomitant]
  7. PHENERGAN HCL [Concomitant]
  8. MAGNESIUM SULPHATE [MAGNESIUM SULFATE] [Concomitant]

REACTIONS (9)
  - DRUG TOXICITY [None]
  - ENTEROCOCCAL INFECTION [None]
  - HYPERTENSIVE CRISIS [None]
  - INTESTINAL OBSTRUCTION [None]
  - LIVER ABSCESS [None]
  - LOSS OF CONSCIOUSNESS [None]
  - POST PROCEDURAL COMPLICATION [None]
  - REVERSIBLE POSTERIOR LEUKOENCEPHALOPATHY SYNDROME [None]
  - SEPSIS [None]
